FAERS Safety Report 5133478-9 (Version None)
Quarter: 2006Q4

REPORT INFORMATION
  Report Type: 
  Country: None (occurrence: None)
  Receive Date: 20061018
  Receipt Date: 20061006
  Transmission Date: 20070319
  Serious: Yes (Other)
  Sender: FDA-Public Use
  Company Number: CHPA2006US10110

PATIENT
  Age: 58 Year
  Sex: Male
  Weight: 74.8 kg

DRUGS (1)
  1. EXCEDRIN (MIGRAINE) [Suspect]
     Indication: PAIN
     Dosage: 1 DF, QD, ORAL
     Route: 048

REACTIONS (2)
  - DRUG ABUSER [None]
  - NO ADVERSE DRUG EFFECT [None]
